FAERS Safety Report 7687962-4 (Version None)
Quarter: 2011Q3

REPORT INFORMATION
  Report Type: 
  Country: None (occurrence: None)
  Receive Date: 20110817
  Receipt Date: 20110804
  Transmission Date: 20111222
  Serious: Yes (Death, Hospitalization, Other)
  Sender: FDA-Public Use
  Company Number: ES-ELI_LILLY_AND_COMPANY-ES201108001526

PATIENT
  Sex: Female
  Weight: 41 kg

DRUGS (10)
  1. METFORMIN HCL [Concomitant]
     Indication: DIABETES MELLITUS
     Dosage: 850 MG, BID
     Route: 048
  2. CALCIUM CARBONATE [Concomitant]
     Indication: OSTEOPOROSIS
     Dosage: 500 MG, QD
     Route: 048
  3. FORTEO [Suspect]
     Indication: OSTEOPOROSIS
     Dosage: 20 UG, QD
     Route: 058
     Dates: start: 20100423
  4. OMEPRAZOLE [Concomitant]
     Indication: GASTRIC DISORDER
     Dosage: 20 MG, QD
     Route: 048
  5. ASPIRIN [Concomitant]
     Dosage: 100 MG, QD
     Route: 048
  6. MIRTAZAPINA [Concomitant]
     Indication: SLEEP DISORDER
     Dosage: 30 MG, QD
     Route: 048
  7. BISOPROLOL FUMARATE [Concomitant]
     Indication: HYPERTENSION
     Dosage: 5 MG, QD
     Route: 048
  8. CORDIPLAST [Concomitant]
     Indication: CARDIAC DISORDER
     Dosage: 10 MG, QD
     Route: 048
  9. SIMVASTATINA [Concomitant]
     Indication: HYPERCHOLESTEROLAEMIA
     Dosage: 20 MG, QD
     Route: 048
  10. HIDROCLOROTIAZIDA [Concomitant]
     Indication: FLUID RETENTION
     Dosage: 0.5 DF, QD
     Route: 048

REACTIONS (5)
  - RENAL FAILURE [None]
  - DEATH [None]
  - CARDIAC INFECTION [None]
  - POISONING [None]
  - OEDEMA PERIPHERAL [None]
